FAERS Safety Report 18349995 (Version 4)
Quarter: 2020Q4

REPORT INFORMATION
  Report Type: Spontaneous
  Country: US (occurrence: US)
  Receive Date: 20201006
  Receipt Date: 20201118
  Transmission Date: 20210114
  Serious: Yes (Death, Life-Threatening, Hospitalization, Other)
  Sender: FDA-Public Use
  Company Number: US-UNITED THERAPEUTICS-UNT-2020-015135

PATIENT
  Age: 66 Year
  Sex: Female
  Weight: 50.34 kg

DRUGS (2)
  1. REMODULIN [Suspect]
     Active Substance: TREPROSTINIL
     Indication: PULMONARY ARTERIAL HYPERTENSION
     Dosage: UNK, CONTINUING
     Route: 041
     Dates: start: 20191227
  2. REMODULIN [Suspect]
     Active Substance: TREPROSTINIL
     Dosage: 0.009 ?G/KG, CONTINUING
     Route: 041

REACTIONS (7)
  - Shock [Recovered/Resolved]
  - Vital functions abnormal [Recovered/Resolved]
  - Death [Fatal]
  - Right ventricular failure [Unknown]
  - Pulmonary hypertension [Not Recovered/Not Resolved]
  - Device malfunction [Unknown]
  - Hypotension [Recovered/Resolved]

NARRATIVE: CASE EVENT DATE: 2020
